FAERS Safety Report 20018605 (Version 2)
Quarter: 2021Q4

REPORT INFORMATION
  Report Type: Spontaneous
  Country: JP (occurrence: JP)
  Receive Date: 20211101
  Receipt Date: 20211210
  Transmission Date: 20220303
  Serious: Yes (Death, Disabling, Other)
  Sender: FDA-Public Use
  Company Number: JP-Merck Healthcare KGaA-9274005

PATIENT
  Age: 75 Year
  Sex: Female

DRUGS (3)
  1. ERBITUX [Suspect]
     Active Substance: CETUXIMAB
     Indication: Colon cancer
     Dosage: 500 MG/M2, ONCE IN TWO WEEKS
     Route: 041
     Dates: start: 202104, end: 202109
  2. ENCORAFENIB [Suspect]
     Active Substance: ENCORAFENIB
     Indication: Colon cancer
     Dosage: 300 MG, DAILY
     Route: 048
     Dates: start: 202104, end: 202109
  3. BINIMETINIB [Suspect]
     Active Substance: BINIMETINIB
     Indication: Colon cancer
     Dosage: 45 MG, UNK
     Route: 048
     Dates: start: 202104, end: 202109

REACTIONS (5)
  - Malignant neoplasm progression [Fatal]
  - Metastases to bone [Not Recovered/Not Resolved]
  - Paralysis [Not Recovered/Not Resolved]
  - Physical deconditioning [Not Recovered/Not Resolved]
  - Off label use [Unknown]

NARRATIVE: CASE EVENT DATE: 20210101
